FAERS Safety Report 9508045 (Version 2)
Quarter: 2013Q4

REPORT INFORMATION
  Report Type: Report from Study
  Country: US (occurrence: US)
  Receive Date: 20130909
  Receipt Date: 20131125
  Transmission Date: 20140711
  Serious: Yes (Hospitalization, Other)
  Sender: FDA-Public Use
  Company Number: US-US-EMD SERONO, INC.-7235709

PATIENT
  Age: 42 Year
  Sex: Female

DRUGS (1)
  1. REBIF [Suspect]
     Indication: PRODUCT USED FOR UNKNOWN INDICATION
     Route: 058
     Dates: start: 20130318, end: 20131108

REACTIONS (6)
  - Staphylococcal infection [Recovering/Resolving]
  - Infected skin ulcer [Unknown]
  - Injection site cellulitis [Recovering/Resolving]
  - Excoriation [Unknown]
  - Injection site bruising [Unknown]
  - Injection site erythema [Unknown]
